FAERS Safety Report 7324650-8 (Version None)
Quarter: 2011Q1

REPORT INFORMATION
  Report Type: 
  Country: None (occurrence: None)
  Receive Date: 20110301
  Receipt Date: 20110218
  Transmission Date: 20110831
  Serious: Yes (Other)
  Sender: FDA-Public Use
  Company Number: PHHY2011US14385

PATIENT
  Age: 51 Year
  Sex: Male

DRUGS (2)
  1. GEMCITABINE [Suspect]
     Indication: PANCREATIC CARCINOMA METASTATIC
  2. OXALIPLATIN [Suspect]
     Indication: PANCREATIC CARCINOMA METASTATIC

REACTIONS (5)
  - JAUNDICE CHOLESTATIC [None]
  - PANCREATITIS ACUTE [None]
  - ABDOMINAL PAIN UPPER [None]
  - PANCREATIC MASS [None]
  - INTESTINAL HAEMATOMA [None]
